FAERS Safety Report 9537652 (Version 2)
Quarter: 2013Q4

REPORT INFORMATION
  Report Type: Spontaneous
  Country: US (occurrence: US)
  Receive Date: 20130919
  Receipt Date: 20131001
  Transmission Date: 20140711
  Serious: Yes (Death, Other)
  Sender: FDA-Public Use
  Company Number: US-JNJFOC-20130905595

PATIENT
  Sex: Female

DRUGS (7)
  1. DOXORUBICIN [Suspect]
     Indication: BREAST CANCER
     Dosage: CONTINUOUS INFUSION OVER 72 HOURS
     Route: 042
  2. 5-FLUOROURACIL [Suspect]
     Indication: BREAST CANCER
     Dosage: OVER 15-30 MINUTES ON DAYS 1 AND 4
     Route: 042
  3. CYCLOPHOSPHAMIDE [Suspect]
     Indication: BREAST CANCER
     Dosage: OVER 15-30 MINUTES ON DAY 1
     Route: 042
  4. METHOTREXATE [Suspect]
     Indication: BREAST CANCER
     Dosage: DAY 1
     Route: 042
  5. CALCIUM LEUCOVORIN [Suspect]
     Indication: BREAST CANCER
     Dosage: EVERY 6 HOURS FOR 6 DOSES STARTING 24 HOURS
     Route: 042
  6. VINBLASTINE [Suspect]
     Indication: BREAST CANCER
     Dosage: OVER 15-30 MINUTES ON DAY 1
     Route: 042
  7. RADIOTHERAPY [Suspect]
     Indication: BREAST CANCER
     Route: 065

REACTIONS (12)
  - Neutropenia [Fatal]
  - Sepsis [Fatal]
  - Febrile neutropenia [Unknown]
  - Breast cancer [Unknown]
  - Neutropenic infection [Unknown]
  - Peripheral sensory neuropathy [Unknown]
  - Nausea [Unknown]
  - Vomiting [Unknown]
  - Diarrhoea [Unknown]
  - Stomatitis [Unknown]
  - Fatigue [Unknown]
  - Musculoskeletal pain [Unknown]
